FAERS Safety Report 8840526 (Version 3)
Quarter: 2015Q3

REPORT INFORMATION
  Report Type: Report from Study
  Country: US (occurrence: US)
  Receive Date: 20121015
  Receipt Date: 20150825
  Transmission Date: 20151125
  Serious: Yes (Other)
  Sender: FDA-Public Use
  Company Number: US-ROCHE-1138947

PATIENT
  Sex: Male
  Weight: 47.8 kg

DRUGS (2)
  1. PROTROPIN [Suspect]
     Active Substance: SOMATREM
     Indication: GROWTH RETARDATION
     Dosage: AS REQUIRED
     Route: 058
     Dates: start: 19920828
  2. LUPRON DEPOT [Concomitant]
     Active Substance: LEUPROLIDE ACETATE
     Route: 065
     Dates: start: 19920828

REACTIONS (1)
  - Atrial tachycardia [Unknown]
